FAERS Safety Report 25675443 (Version 3)
Quarter: 2025Q3

REPORT INFORMATION
  Report Type: Spontaneous
  Country: EU (occurrence: EU)
  Receive Date: 20250813
  Receipt Date: 20250926
  Transmission Date: 20251020
  Serious: Yes (Hospitalization)
  Sender: BRISTOL-MYERS SQUIBB COMPANY
  Company Number: None

PATIENT
  Age: 55 Year
  Sex: Female

DRUGS (2)
  1. OPDIVO [Suspect]
     Active Substance: NIVOLUMAB
     Indication: Renal cancer
     Dates: start: 202403, end: 202503
  2. CABOMETYX [Suspect]
     Active Substance: CABOZANTINIB S-MALATE
     Indication: Renal cancer
     Dates: start: 202403, end: 202408

REACTIONS (1)
  - Morphoea [Not Recovered/Not Resolved]

NARRATIVE: CASE EVENT DATE: 20240801
